FAERS Safety Report 10137719 (Version 1)
Quarter: 2014Q2

REPORT INFORMATION
  Report Type: Spontaneous
  Country: US (occurrence: None)
  Receive Date: 20140428
  Receipt Date: 20140428
  Transmission Date: 20141212
  Serious: No
  Sender: FDA-Public Use
  Company Number: None

PATIENT
  Age: 29 Year
  Sex: Female
  Weight: 79 kg

DRUGS (1)
  1. AUGMENTIN (ORAL) [Suspect]
     Indication: TOOTH EXTRACTION
     Route: 048

REACTIONS (3)
  - Diarrhoea [None]
  - Palpitations [None]
  - Abdominal discomfort [None]
